FAERS Safety Report 9509623 (Version 1)
Quarter: 2013Q3

REPORT INFORMATION
  Report Type: Spontaneous
  Country: US (occurrence: US)
  Receive Date: 20130814
  Receipt Date: 20130814
  Transmission Date: 20140515
  Serious: Yes (Other)
  Sender: FDA-Public Use
  Company Number: US-ASTELLAS-2013US008324

PATIENT
  Sex: Male

DRUGS (2)
  1. PROGRAF [Suspect]
     Indication: PROTEINURIA
     Dosage: 2 MG, UID/QD
     Route: 048
     Dates: start: 1999
  2. PROGRAF [Suspect]
     Indication: TRANSPLANT

REACTIONS (2)
  - Off label use [Unknown]
  - Transplant [Unknown]
